FAERS Safety Report 16914141 (Version 2)
Quarter: 2019Q4

REPORT INFORMATION
  Report Type: Spontaneous
  Country: US (occurrence: US)
  Receive Date: 20191014
  Receipt Date: 20191205
  Transmission Date: 20200122
  Serious: No
  Sender: FDA-Public Use
  Company Number: US-PFIZER INC-2019440234

PATIENT
  Age: 70 Year
  Sex: Female

DRUGS (5)
  1. PHISOHEX [TRICLOSAN] [Suspect]
     Active Substance: TRICLOSAN
     Dosage: UNK
  2. DILANTIN [Suspect]
     Active Substance: PHENYTOIN
     Dosage: UNK
  3. KEFLEX [Suspect]
     Active Substance: CEPHALEXIN
     Dosage: UNK
  4. CELEBREX [Suspect]
     Active Substance: CELECOXIB
     Dosage: UNK
  5. COMPAZINE [PROCHLORPERAZINE EDISYLATE] [Suspect]
     Active Substance: PROCHLORPERAZINE EDISYLATE
     Dosage: UNK

REACTIONS (1)
  - Drug hypersensitivity [Unknown]
